APPROVED DRUG PRODUCT: BUTABARBITAL SODIUM
Active Ingredient: BUTABARBITAL SODIUM
Strength: 15MG
Dosage Form/Route: TABLET;ORAL
Application: A084292 | Product #003
Applicant: SANDOZ INC
Approved: Feb 9, 1982 | RLD: No | RS: No | Type: DISCN